FAERS Safety Report 19618730 (Version 2)
Quarter: 2022Q2

REPORT INFORMATION
  Report Type: Spontaneous
  Country: US (occurrence: None)
  Receive Date: 20210727
  Receipt Date: 20220621
  Transmission Date: 20220720
  Serious: No
  Sender: FDA-Public Use
  Company Number: US-ROCHE-2816633

PATIENT
  Sex: Female

DRUGS (4)
  1. XELODA [Suspect]
     Active Substance: CAPECITABINE
     Indication: Product used for unknown indication
     Route: 048
  2. TUKYSA [Suspect]
     Active Substance: TUCATINIB
     Indication: Product used for unknown indication
     Route: 048
  3. TUKYSA [Suspect]
     Active Substance: TUCATINIB
     Route: 048
  4. HERCEPTIN [Concomitant]
     Active Substance: TRASTUZUMAB
     Route: 065

REACTIONS (17)
  - Gastric disorder [Unknown]
  - Nausea [Unknown]
  - Abdominal discomfort [Unknown]
  - Product use complaint [Unknown]
  - Abdominal pain upper [Recovered/Resolved]
  - Blood creatinine increased [Unknown]
  - Glomerular filtration rate increased [Unknown]
  - Sleep disorder [Unknown]
  - Muscle spasms [Unknown]
  - Feeling cold [Unknown]
  - Blood bilirubin abnormal [Unknown]
  - Blood magnesium abnormal [Unknown]
  - Blood calcium abnormal [Unknown]
  - Platelet count abnormal [Unknown]
  - Fatigue [Unknown]
  - Haemoglobin decreased [Unknown]
  - Diarrhoea [Recovered/Resolved]
